FAERS Safety Report 25156610 (Version 1)
Quarter: 2025Q2

REPORT INFORMATION
  Report Type: Spontaneous
  Country: ES (occurrence: ES)
  Receive Date: 20250403
  Receipt Date: 20250403
  Transmission Date: 20250716
  Serious: Yes (Hospitalization)
  Sender: PFIZER
  Company Number: None

PATIENT
  Age: 86 Year
  Sex: Male

DRUGS (7)
  1. SPIRONOLACTONE [Suspect]
     Active Substance: SPIRONOLACTONE
     Indication: Cardiac failure
     Dosage: 25 MG, 1X/DAY
     Route: 048
     Dates: start: 20230926, end: 20240109
  2. ENALAPRIL [Suspect]
     Active Substance: ENALAPRIL
     Indication: Hypertension
     Dosage: 2.5 MG, 1X/DAY
     Route: 048
     Dates: start: 20230223, end: 20240109
  3. FUROSEMIDE [Suspect]
     Active Substance: FUROSEMIDE
     Indication: Cardiac failure
     Dosage: 40 MG, 3X/DAY (BEFORE BREAKFAST, LUNCH AND DINNER)
     Route: 048
     Dates: start: 20180421, end: 20240109
  4. DAPAGLIFLOZIN [Suspect]
     Active Substance: DAPAGLIFLOZIN
     Indication: Diabetes mellitus
     Dosage: 10 MG, 1X/DAY
     Route: 048
     Dates: start: 20230308, end: 20240109
  5. BISOPROLOL FUMARATE [Concomitant]
     Active Substance: BISOPROLOL FUMARATE
     Indication: Diabetic retinopathy
     Dosage: 1.25 MG, 1X/DAY
     Route: 048
     Dates: start: 20230308
  6. ALLOPURINOL [Concomitant]
     Active Substance: ALLOPURINOL
     Indication: Gout
     Route: 048
     Dates: start: 20180421
  7. TOUJEO [Concomitant]
     Active Substance: INSULIN GLARGINE
     Indication: Diabetes mellitus
     Dosage: 25 IU, 1X/DAY
     Route: 058
     Dates: start: 20160503

REACTIONS (2)
  - Chronic kidney disease [Recovered/Resolved]
  - Lactic acidosis [Recovered/Resolved]

NARRATIVE: CASE EVENT DATE: 20240108
